FAERS Safety Report 4341444-6 (Version None)
Quarter: 2004Q2

REPORT INFORMATION
  Report Type: 
  Country: None (occurrence: None)
  Receive Date: 20040419
  Receipt Date: 20040401
  Transmission Date: 20050107
  Serious: Yes (Other)
  Sender: FDA-Public Use
  Company Number: 200411085GDS

PATIENT
  Age: 66 Year
  Sex: Male
  Weight: 63 kg

DRUGS (6)
  1. AVELOX [Suspect]
     Indication: ACUTE SINUSITIS
     Dosage: 400 MG, BID ORAL
     Route: 048
     Dates: start: 20031126
  2. AVELOX [Suspect]
     Indication: PNEUMONIA
     Dosage: 400 MG, BID ORAL
     Route: 048
     Dates: start: 20031126
  3. XANTHIUM (THEOPHYLLINE) [Suspect]
  4. MEDROL [Concomitant]
  5. ZURCALE [Concomitant]
  6. XANTHIUM [Concomitant]

REACTIONS (2)
  - DRUG INTERACTION [None]
  - TENDON DISORDER [None]
